FAERS Safety Report 24201047 (Version 1)
Quarter: 2024Q3

REPORT INFORMATION
  Report Type: Spontaneous
  Country: GB (occurrence: GB)
  Receive Date: 20240812
  Receipt Date: 20240812
  Transmission Date: 20241017
  Serious: Yes (Hospitalization)
  Sender: Thea Pharma
  Company Number: None

PATIENT
  Age: 77 Year
  Sex: Female
  Weight: 70 kg

DRUGS (2)
  1. LATANOPROST [Suspect]
     Active Substance: LATANOPROST
     Indication: Adverse drug reaction
     Dosage: 50 MG ONE AT NIGHT
     Dates: start: 20240206, end: 20240503
  2. LATANOPROST [Suspect]
     Active Substance: LATANOPROST
     Indication: Adverse drug reaction
     Dosage: 50 MG
     Dates: start: 20240205, end: 20240503

REACTIONS (1)
  - Fatigue [Recovering/Resolving]

NARRATIVE: CASE EVENT DATE: 20240220
